FAERS Safety Report 20035990 (Version 2)
Quarter: 2021Q4

REPORT INFORMATION
  Report Type: Spontaneous
  Country: PL (occurrence: PL)
  Receive Date: 20211105
  Receipt Date: 20211124
  Transmission Date: 20220303
  Serious: Yes (Hospitalization, Other)
  Sender: FDA-Public Use
  Company Number: PL-SA-2021SA164958

PATIENT
  Age: 64 Year
  Sex: Male

DRUGS (6)
  1. IMATINIB [Suspect]
     Active Substance: IMATINIB
     Indication: Chronic myeloid leukaemia
     Dosage: 400 MILLIGRAM, ONCE A DAY
     Route: 065
     Dates: start: 201302, end: 201602
  2. DASATINIB [Suspect]
     Active Substance: DASATINIB
     Indication: Chronic myeloid leukaemia
     Dosage: 50 MILLIGRAM, ONCE A DAY
     Route: 065
     Dates: start: 201702
  3. NILOTINIB [Suspect]
     Active Substance: NILOTINIB
     Indication: Chronic myeloid leukaemia
     Dosage: 800 MILLIGRAM, ONCE A DAY
     Route: 065
     Dates: start: 2016, end: 201702
  4. ADRIAMYCIN [Concomitant]
     Active Substance: DOXORUBICIN HYDROCHLORIDE
     Indication: Hodgkin^s disease
     Dosage: UNK
     Route: 065
  5. DACARBAZINE [Concomitant]
     Active Substance: DACARBAZINE
     Indication: Hodgkin^s disease
     Dosage: UNK
     Route: 065
  6. VINBLASTINE [Concomitant]
     Active Substance: VINBLASTINE
     Indication: Hodgkin^s disease
     Dosage: UNK
     Route: 065

REACTIONS (6)
  - Acoustic neuroma [Unknown]
  - Drug resistance [Unknown]
  - Hodgkin^s disease [Recovering/Resolving]
  - Cardiovascular disorder [Unknown]
  - Myocardial ischaemia [Unknown]
  - Peripheral arterial occlusive disease [Unknown]

NARRATIVE: CASE EVENT DATE: 20160201
